FAERS Safety Report 17493460 (Version 2)
Quarter: 2021Q2

REPORT INFORMATION
  Report Type: Spontaneous
  Country: US (occurrence: US)
  Receive Date: 20200303
  Receipt Date: 20210603
  Transmission Date: 20210716
  Serious: Yes (Hospitalization, Other)
  Sender: FDA-Public Use
  Company Number: US-AMNEAL PHARMACEUTICALS-2019-IPXL-00849

PATIENT
  Age: 69 Year
  Sex: Male

DRUGS (10)
  1. RYTARY [Suspect]
     Active Substance: CARBIDOPA\LEVODOPA
     Dosage: 61.25/245 MG 10 CAPSULES, DAILY (3 CAPS AT 7AM, 2 CAPS AT 11AM, 3 CAPS AT 3PM, 2 CAPS AT 7PM)
     Route: 048
  2. RYTARY [Suspect]
     Active Substance: CARBIDOPA\LEVODOPA
     Dosage: 23.75/95 MG, 2 CAPSULES, AT 11 AM DAILY
     Route: 048
  3. RYTARY [Suspect]
     Active Substance: CARBIDOPA\LEVODOPA
     Dosage: 23.75/95 MG, 1 CAPSULE AT 7AM, 3 CAPSULES AT 11 AM DAILY, 1 CAPSULE AT 7PM
     Route: 048
  4. RYTARY [Suspect]
     Active Substance: CARBIDOPA\LEVODOPA
     Dosage: 23.75/95 MG, 2 CAPSULES, 1 /DAY (AT 11AM)
     Route: 048
  5. RYTARY [Suspect]
     Active Substance: CARBIDOPA\LEVODOPA
     Dosage: 23.75/95 MG, 1 CAPSULE AT 7AM, 3 CAPSULES, AT 11 AM DAILY
     Route: 048
     Dates: start: 20200814
  6. RYTARY [Suspect]
     Active Substance: CARBIDOPA\LEVODOPA
     Indication: PARKINSON^S DISEASE
     Dosage: 23.75/95MG AT 2 CAPSULES AT 11AM AND 2 CAPSULES AT 7 PM
     Route: 048
  7. RYTARY [Suspect]
     Active Substance: CARBIDOPA\LEVODOPA
     Dosage: 61.25/245MG 3 CAPSULES EARLY IN THE
     Route: 048
  8. RYTARY [Suspect]
     Active Substance: CARBIDOPA\LEVODOPA
     Dosage: 23.75/95MG, 5 CAPSULE (TAKE 1 CAPSULE BY MOUTH AT 7AM, 3 CAPSULES AT 11AM, AND 1CAPSULE AT 7PM)
     Route: 048
     Dates: start: 20201120
  9. RYTARY [Suspect]
     Active Substance: CARBIDOPA\LEVODOPA
     Dosage: 61.25/245 MG 10 CAPSULES, DAILY (3 CAPS AT 7AM, 2 CAPS AT 11AM, 3 CAPS AT 3PM, 2 CAPS AT 7PM)
     Route: 048
  10. RYTARY [Suspect]
     Active Substance: CARBIDOPA\LEVODOPA
     Dosage: 23.75/95MG, 5?7 TABLETS
     Route: 048

REACTIONS (4)
  - Fall [Recovering/Resolving]
  - Prescribed overdose [Unknown]
  - Weight decreased [Recovered/Resolved]
  - Therapy cessation [Unknown]

NARRATIVE: CASE EVENT DATE: 202012
